FAERS Safety Report 7496556-5 (Version None)
Quarter: 2011Q2

REPORT INFORMATION
  Report Type: 
  Country: None (occurrence: None)
  Receive Date: 20110520
  Receipt Date: 20110520
  Transmission Date: 20111010
  Serious: Yes (Other)
  Sender: FDA-Public Use
  Company Number: None

PATIENT
  Age: 70 Year
  Sex: Male
  Weight: 76.9 kg

DRUGS (12)
  1. LISINOPRIL [Concomitant]
  2. VANDETANIB 200MG ASTRAZENECA [Suspect]
     Indication: GLIOBLASTOMA MULTIFORME
     Dosage: 200MG QD PO
     Route: 048
     Dates: start: 20110317, end: 20110518
  3. SIROLIMUS [Suspect]
     Indication: GLIOBLASTOMA MULTIFORME
     Dosage: 2MG QD PO
     Route: 048
     Dates: start: 20110217, end: 20110518
  4. DIPHENHYDRAMINE HCL [Concomitant]
  5. CIALIS [Concomitant]
  6. IMODIUM [Concomitant]
  7. DEXAMETHASONE [Concomitant]
  8. ZOFRAN [Concomitant]
  9. HYDROCORLISONE [Concomitant]
  10. BACTRIM [Concomitant]
  11. LOVENOX [Concomitant]
  12. MYCOSTATIN MOUTHWASH [Concomitant]

REACTIONS (7)
  - SKIN HAEMORRHAGE [None]
  - PHOTOSENSITIVITY REACTION [None]
  - PRURITUS [None]
  - SKIN ULCER [None]
  - DISCOMFORT [None]
  - PALMAR-PLANTAR ERYTHRODYSAESTHESIA SYNDROME [None]
  - SKIN DISORDER [None]
